FAERS Safety Report 5558184-8 (Version None)
Quarter: 2007Q4

REPORT INFORMATION
  Report Type: 
  Country: None (occurrence: None)
  Receive Date: 20071214
  Receipt Date: 20071205
  Transmission Date: 20080405
  Serious: Yes (Other)
  Sender: FDA-Public Use
  Company Number: GB-PFIZER INC-2007037047

PATIENT
  Age: 75 Year
  Sex: Male
  Weight: 93.4 kg

DRUGS (7)
  1. LIPITOR [Suspect]
     Route: 048
     Dates: start: 20070424, end: 20070430
  2. INSULIN [Concomitant]
     Route: 048
  3. VALSARTAN [Concomitant]
     Route: 048
  4. FUROSEMIDE [Concomitant]
     Route: 048
  5. ACETYLSALICYLIC ACID SRT [Concomitant]
     Route: 048
  6. BECLOMETHASONE DIPROPIONATE [Concomitant]
     Route: 055
  7. ALBUTEROL [Concomitant]
     Route: 055

REACTIONS (1)
  - VISION BLURRED [None]
